FAERS Safety Report 6455123 (Version 4)
Quarter: 2013Q2

REPORT INFORMATION
  Report Type: Spontaneous
  Country: US (occurrence: US)
  Receive Date: 20071030
  Receipt Date: 20130513
  Transmission Date: 20140414
  Serious: Yes (Other)
  Sender: FDA-Public Use
  Company Number: US-ELI_LILLY_AND_COMPANY-US_0504115821

PATIENT
  Age: 11 Year
  Sex: Female
  Weight: 31.8 kg

DRUGS (4)
  1. STRATTERA [Suspect]
     Indication: ATTENTION DEFICIT/HYPERACTIVITY DISORDER
     Dosage: 30 MG, DAILY (1/D)
     Route: 048
     Dates: start: 20040615, end: 20040930
  2. STRATTERA [Suspect]
     Dosage: 10 MG, DAILY (1/D)
     Route: 048
  3. STRATTERA [Suspect]
     Dosage: 20 MG, DAILY (1/D)
     Route: 048
  4. STRATTERA [Suspect]
     Dosage: 30 MG, DAILY (1/D)
     Route: 048

REACTIONS (7)
  - Autoimmune hepatitis [Recovered/Resolved]
  - Liver injury [Unknown]
  - Necrosis [Unknown]
  - Fatigue [Unknown]
  - Weight decreased [Unknown]
  - Arthralgia [Unknown]
  - Pyrexia [Recovered/Resolved]
